FAERS Safety Report 9210778 (Version 2)
Quarter: 2013Q2

REPORT INFORMATION
  Report Type: Spontaneous
  Country: JP (occurrence: JP)
  Receive Date: 20130404
  Receipt Date: 20130423
  Transmission Date: 20140414
  Serious: Yes (Other)
  Sender: FDA-Public Use
  Company Number: JP-GLAXOSMITHKLINE-B0879941A

PATIENT
  Age: 79 Year
  Sex: Male

DRUGS (11)
  1. SERETIDE (50MCG/250MCG) [Suspect]
     Indication: RESPIRATORY DISORDER
     Dosage: 250MCG TWICE PER DAY
     Route: 055
     Dates: end: 2013
  2. FLIVAS [Concomitant]
     Route: 048
  3. CERNILTON [Concomitant]
     Route: 048
  4. AMBROXOL HYDROCHLORIDE [Concomitant]
     Route: 048
  5. FUROSEMIDE [Concomitant]
     Route: 048
  6. ANTI-ARRYTHMIC [Concomitant]
     Route: 048
  7. WARFARIN [Concomitant]
     Route: 048
  8. LIPITOR [Concomitant]
     Route: 048
  9. BAYASPIRIN [Concomitant]
     Route: 048
  10. ALLOPURINOL [Concomitant]
     Route: 048
  11. THEODUR [Concomitant]
     Route: 048

REACTIONS (2)
  - Urinary retention [Recovered/Resolved]
  - Dysuria [Recovered/Resolved]
